FAERS Safety Report 7978447-6 (Version None)
Quarter: 2011Q4

REPORT INFORMATION
  Report Type: 
  Country: None (occurrence: None)
  Receive Date: 20111214
  Receipt Date: 20111206
  Transmission Date: 20120403
  Serious: Yes (Other)
  Sender: FDA-Public Use
  Company Number: JP-JNJFOC-20110902914

PATIENT
  Age: 6 Decade
  Sex: Female

DRUGS (4)
  1. RISPERDAL [Suspect]
     Indication: PRODUCT USED FOR UNKNOWN INDICATION
     Route: 048
  2. RISPERDAL [Suspect]
     Dosage: ADJUSTED DOSES
     Route: 048
     Dates: start: 20080101
  3. RISPERIDONE [Suspect]
     Indication: PRODUCT USED FOR UNKNOWN INDICATION
     Dosage: ADJUSTED DOSES
     Route: 048
     Dates: start: 20080101
  4. RISPERIDONE [Suspect]
     Route: 048

REACTIONS (4)
  - DEFORMITY [None]
  - MUSCULOSKELETAL STIFFNESS [None]
  - DYSKINESIA [None]
  - TONGUE DISORDER [None]
